FAERS Safety Report 4714567-7 (Version None)
Quarter: 2005Q3

REPORT INFORMATION
  Report Type: 
  Country: None (occurrence: None)
  Receive Date: 20050714
  Receipt Date: 20050630
  Transmission Date: 20060218
  Serious: Yes (Hospitalization, Disabling)
  Sender: FDA-Public Use
  Company Number: NO-MERCK-0507NOR00001

PATIENT
  Age: 60 Year
  Sex: Male

DRUGS (9)
  1. VIOXX [Suspect]
     Indication: OSTEOARTHRITIS
     Route: 048
     Dates: start: 20010703, end: 20021016
  2. CANDESARTAN [Concomitant]
     Indication: HYPERTENSION
     Route: 048
     Dates: start: 19981116
  3. METOPROLOL [Concomitant]
     Indication: HYPERTENSION
     Route: 048
     Dates: start: 19970409
  4. FELODIPINE [Concomitant]
     Indication: HYPERTENSION
     Route: 048
     Dates: start: 19990510
  5. FELODIPINE [Concomitant]
     Route: 048
     Dates: start: 19990510
  6. FUROSEMIDE [Concomitant]
     Indication: HYPERTENSION
     Route: 048
     Dates: start: 20020704
  7. DOXYCYCLINE [Concomitant]
     Indication: NASOPHARYNGITIS
     Route: 048
     Dates: start: 20021009, end: 20021001
  8. DOXYCYCLINE [Concomitant]
     Indication: PROPHYLAXIS
     Route: 048
     Dates: start: 20021009, end: 20021001
  9. ALLOPURINOL [Concomitant]
     Indication: GOUT
     Route: 048
     Dates: start: 19960621

REACTIONS (7)
  - BLOOD CREATININE INCREASED [None]
  - CAROTID ARTERY STENOSIS [None]
  - CEREBRAL INFARCTION [None]
  - EPILEPSY [None]
  - HYPERTENSIVE HEART DISEASE [None]
  - NASOPHARYNGITIS [None]
  - VENTRICULAR HYPERTROPHY [None]
